FAERS Safety Report 10039497 (Version 1)
Quarter: 2014Q1

REPORT INFORMATION
  Report Type: Spontaneous
  Country: US (occurrence: None)
  Receive Date: 20140306
  Receipt Date: 20140306
  Transmission Date: 20141002
  Serious: Yes (Hospitalization)
  Sender: FDA-Public Use
  Company Number: 163-21880-13033632

PATIENT
  Age: 57 Year
  Sex: Female

DRUGS (8)
  1. REVLIMID [Suspect]
     Indication: PLASMA CELL MYELOMA
     Dosage: 15 MG, 21 IN 21 D, PO
     Route: 048
     Dates: start: 20110421, end: 2011
  2. ASPIRINE (ACETYLSALICYLIC ACID) (UNKNOWN) [Concomitant]
  3. ATIVAN (LORAZEPAM) (UNKNOWN) [Concomitant]
  4. CLARITHROMYCIN (CLARITHROMYCIN) (UNKNOWN) [Concomitant]
  5. CLARITIN (LORATADINE) (UNKNOWN) [Concomitant]
  6. CURCUMIN (CURCUMIN) (UNKNOWN) [Concomitant]
  7. DEXAMETHASONE (DEXAMETHASONE) (UNKNOWN) [Concomitant]
  8. FISH OIL (FISH OIL) (UNKNOWN) [Concomitant]

REACTIONS (2)
  - Diarrhoea [None]
  - Dehydration [None]
